FAERS Safety Report 5303598-4 (Version None)
Quarter: 2007Q2

REPORT INFORMATION
  Report Type: 
  Country: None (occurrence: None)
  Receive Date: 20070420
  Receipt Date: 20070411
  Transmission Date: 20071010
  Serious: Yes (Death)
  Sender: FDA-Public Use
  Company Number: JP-PFIZER INC-2007026422

PATIENT
  Sex: Male

DRUGS (6)
  1. GABAPEN [Suspect]
     Indication: EPILEPSY
     Dosage: DAILY DOSE:1200MG
     Route: 048
     Dates: start: 20070116, end: 20070329
  2. GABAPEN [Suspect]
     Indication: TEMPORAL LOBE EPILEPSY
  3. TEGRETOL [Suspect]
     Indication: TEMPORAL LOBE EPILEPSY
     Dosage: DAILY DOSE:600MG
     Route: 048
     Dates: start: 19980902, end: 20070329
  4. EXCEGRAN [Suspect]
     Indication: TEMPORAL LOBE EPILEPSY
     Dosage: DAILY DOSE:300MG
     Route: 048
     Dates: start: 19981214, end: 20070329
  5. CLOBAZAM [Suspect]
     Indication: TEMPORAL LOBE EPILEPSY
     Dosage: DAILY DOSE:30MG
     Route: 048
     Dates: start: 20010802, end: 20070201
  6. VOLTAREN [Suspect]
     Indication: HEADACHE
     Route: 048

REACTIONS (1)
  - SUDDEN DEATH [None]
